FAERS Safety Report 15702908 (Version 1)
Quarter: 2018Q4

REPORT INFORMATION
  Report Type: Report from Study
  Country: GB (occurrence: GB)
  Receive Date: 20181210
  Receipt Date: 20181210
  Transmission Date: 20190205
  Serious: Yes (Death, Hospitalization, Other)
  Sender: FDA-Public Use
  Company Number: GB-AMGEN-GBRCT2011004136

PATIENT
  Age: 54 Year
  Sex: Female
  Weight: 62 kg

DRUGS (1)
  1. ETANERCEPT [Suspect]
     Active Substance: ETANERCEPT
     Indication: RHEUMATOID ARTHRITIS
     Dosage: UNK
     Route: 065
     Dates: start: 20050603, end: 20051229

REACTIONS (9)
  - Hypertension [Fatal]
  - Urinary tract infection [Fatal]
  - Arthritis bacterial [Unknown]
  - Sepsis [Fatal]
  - Subcutaneous abscess [Unknown]
  - Myelopathy [Unknown]
  - Myelitis [Unknown]
  - Hypotension [Fatal]
  - Intervertebral discitis [Unknown]

NARRATIVE: CASE EVENT DATE: 20070315
